FAERS Safety Report 25620505 (Version 1)
Quarter: 2025Q3

REPORT INFORMATION
  Report Type: Spontaneous
  Country: US (occurrence: US)
  Receive Date: 20250730
  Receipt Date: 20250730
  Transmission Date: 20251021
  Serious: No
  Sender: JOHNSON AND JOHNSON
  Company Number: US-JNJFOC-20250734510

PATIENT

DRUGS (2)
  1. TREMFYA [Suspect]
     Active Substance: GUSELKUMAB
     Indication: Product used for unknown indication
     Dates: start: 20250715
  2. TYLENOL [Concomitant]
     Active Substance: ACETAMINOPHEN
     Indication: Sleep apnoea syndrome

REACTIONS (5)
  - Infusion related reaction [Unknown]
  - Arthralgia [Unknown]
  - Rash [Unknown]
  - Pain in extremity [Unknown]
  - Swelling [Unknown]
